FAERS Safety Report 8841909 (Version 1)
Quarter: 2012Q4

REPORT INFORMATION
  Report Type: 
  Country: US (occurrence: US)
  Receive Date: 20121016
  Receipt Date: 20121016
  Transmission Date: 20130627
  Serious: Yes (Hospitalization)
  Sender: FDA-Public Use
  Company Number: US-BAYER-2012-106764

PATIENT
  Age: 31 Year
  Sex: Female
  Weight: 68.03 kg

DRUGS (5)
  1. YAZ [Suspect]
     Indication: POLYCYSTIC OVARIES
  2. GIANVI [Suspect]
  3. LEVOTHYROXINE [Concomitant]
  4. VENLAFAXINE [Concomitant]
  5. SYNTHROID [Concomitant]

REACTIONS (2)
  - Pulmonary embolism [None]
  - Deep vein thrombosis [None]
